FAERS Safety Report 21803339 (Version 1)
Quarter: 2023Q1

REPORT INFORMATION
  Report Type: Spontaneous
  Country: US (occurrence: US)
  Receive Date: 20230101
  Receipt Date: 20230101
  Transmission Date: 20230418
  Serious: No
  Sender: FDA-Public Use
  Company Number: US-GLAXOSMITHKLINE-USCH2022050722

PATIENT
  Age: 39 Year
  Sex: Female

DRUGS (2)
  1. ACETAMINOPHEN\DEXTROMETHORPHAN HYDROBROMIDE [Suspect]
     Active Substance: ACETAMINOPHEN\DEXTROMETHORPHAN HYDROBROMIDE
     Indication: Influenza
     Dosage: UNK
     Dates: start: 20221215, end: 20221217
  2. ACETAMINOPHEN\CHLORPHENIRAMINE\DEXTROMETHORPHAN [Suspect]
     Active Substance: ACETAMINOPHEN\CHLORPHENIRAMINE\DEXTROMETHORPHAN
     Indication: Influenza
     Dosage: UNK
     Dates: start: 20221215, end: 20221217

REACTIONS (2)
  - Product label confusion [Unknown]
  - Wrong product administered [Unknown]
